FAERS Safety Report 8115205 (Version 2)
Quarter: 2014Q3

REPORT INFORMATION
  Report Type: Spontaneous
  Country: US (occurrence: US)
  Receive Date: 20110831
  Receipt Date: 20140801
  Transmission Date: 20150326
  Serious: Yes (Other)
  Sender: FDA-Public Use
  Company Number: US-GLAXOSMITHKLINE-A0925395A

PATIENT
  Sex: Female

DRUGS (1)
  1. AVANDIA [Suspect]
     Active Substance: ROSIGLITAZONE MALEATE
     Indication: DIABETES MELLITUS
     Dosage: 4MG PER DAY
     Route: 048
     Dates: start: 20040602, end: 20080101

REACTIONS (8)
  - Dyspnoea [Unknown]
  - Fluid retention [Unknown]
  - Cardiac disorder [Unknown]
  - Fatigue [Unknown]
  - Chest pain [Unknown]
  - Swelling [Unknown]
  - Cardiac failure congestive [Not Recovered/Not Resolved]
  - Palpitations [Unknown]
